FAERS Safety Report 8561060-X (Version None)
Quarter: 2012Q3

REPORT INFORMATION
  Report Type: 
  Country: None (occurrence: None)
  Receive Date: 20120802
  Receipt Date: 20120530
  Transmission Date: 20120928
  Serious: No
  Sender: FDA-Public Use
  Company Number: US-BRISTOL-MYERS SQUIBB COMPANY-16310989

PATIENT
  Age: 61 Year
  Sex: Female
  Weight: 72 kg

DRUGS (3)
  1. TRUVADA [Concomitant]
  2. REYATAZ [Suspect]
     Dosage: REYATAZ FOR A ABOUT A WEEK NOW.LOT#2A5006A,EXP DT:20JAN2014
  3. NORVIR [Concomitant]

REACTIONS (2)
  - PRURITUS [None]
  - DRUG DOSE OMISSION [None]
